FAERS Safety Report 7631119-X (Version None)
Quarter: 2011Q3

REPORT INFORMATION
  Report Type: 
  Country: None (occurrence: None)
  Receive Date: 20110725
  Receipt Date: 20110718
  Transmission Date: 20111222
  Serious: Yes (Death)
  Sender: FDA-Public Use
  Company Number: US-JNJFOC-20110605260

PATIENT
  Sex: Male
  Weight: 81.65 kg

DRUGS (1)
  1. DURAGESIC-100 [Suspect]
     Indication: BACK PAIN
     Route: 062
     Dates: start: 20090901

REACTIONS (2)
  - RESPIRATORY DEPRESSION [None]
  - OVERDOSE [None]
